FAERS Safety Report 7749958-3 (Version None)
Quarter: 2011Q3

REPORT INFORMATION
  Report Type: 
  Country: None (occurrence: None)
  Receive Date: 20110912
  Receipt Date: 20110824
  Transmission Date: 20111222
  Serious: Yes (Other)
  Sender: FDA-Public Use
  Company Number: 2011SP040094

PATIENT
  Age: 62 Year
  Sex: Female

DRUGS (13)
  1. LANTUS [Concomitant]
  2. POTASSIUM [Concomitant]
  3. VICTRELIS [Suspect]
     Indication: HEPATITIS C
     Dosage: 800 MG;TID;PO
     Route: 048
     Dates: start: 20110701, end: 20110817
  4. VICTRELIS [Suspect]
     Indication: HEPATITIS C
     Dosage: 800 MG;TID;PO
     Route: 048
     Dates: start: 20110820
  5. PANTOPRAZOLE [Concomitant]
  6. VITAMIN D [Concomitant]
  7. RIBAVIRIN [Suspect]
     Indication: PRODUCT USED FOR UNKNOWN INDICATION
     Dosage: 600 MG;BID;
  8. LISINOPRIL [Concomitant]
  9. METOPROLOL TARTRATE AND HYDROCHLOROTHIAZIDE [Concomitant]
  10. RIBOFLAVIN [Concomitant]
  11. URSODIOL [Concomitant]
  12. GLIPIZIDE [Concomitant]
  13. PEG-INTRON [Suspect]
     Indication: PRODUCT USED FOR UNKNOWN INDICATION
     Dosage: 180 MCG;

REACTIONS (5)
  - DRY MOUTH [None]
  - DIARRHOEA [None]
  - THROMBOCYTOPENIA [None]
  - DYSGEUSIA [None]
  - WHITE BLOOD CELL COUNT DECREASED [None]
